FAERS Safety Report 7458710-8 (Version None)
Quarter: 2011Q2

REPORT INFORMATION
  Report Type: 
  Country: None (occurrence: None)
  Receive Date: 20110504
  Receipt Date: 20110421
  Transmission Date: 20111010
  Serious: No
  Sender: FDA-Public Use
  Company Number: US-B.I. PHARMACEUTICALS,INC./RIDGEFIELD-2011-BP-07984BP

PATIENT
  Sex: Male

DRUGS (8)
  1. PRADAXA [Suspect]
     Indication: ANTICOAGULANT THERAPY
  2. ASPIRIN [Concomitant]
     Dosage: 81 MG
  3. SOTALOL HCL [Concomitant]
     Dosage: 240 MG
  4. LOSARTAN POTASSIUM [Concomitant]
     Indication: BLOOD PRESSURE
  5. PRADAXA [Suspect]
     Indication: ATRIAL FIBRILLATION
     Dosage: 300 MG
     Dates: start: 20101201
  6. MAXZIDE [Concomitant]
     Dosage: 25 MG
  7. VITAMIN D [Concomitant]
  8. AMBIEN [Concomitant]
     Dosage: 12.5 MG

REACTIONS (2)
  - DIARRHOEA [None]
  - TINNITUS [None]
